FAERS Safety Report 8481075-X (Version None)
Quarter: 2012Q3

REPORT INFORMATION
  Report Type: 
  Country: None (occurrence: None)
  Receive Date: 20120702
  Receipt Date: 20120627
  Transmission Date: 20120928
  Serious: Yes (Hospitalization)
  Sender: FDA-Public Use
  Company Number: PHHY2012BR055717

PATIENT
  Sex: Female

DRUGS (1)
  1. FORMOTEROL FUMARATE [Suspect]
     Indication: NASOPHARYNGITIS
     Dosage: 2 DF,DAILY

REACTIONS (3)
  - RESPIRATORY DISORDER [None]
  - COUGH [None]
  - FATIGUE [None]
